FAERS Safety Report 6250519-6 (Version None)
Quarter: 2009Q2

REPORT INFORMATION
  Report Type: 
  Country: None (occurrence: None)
  Receive Date: 20090630
  Receipt Date: 20090624
  Transmission Date: 20091009
  Serious: Yes (Death)
  Sender: FDA-Public Use
  Company Number: NL-ROCHE-640335

PATIENT
  Sex: Male

DRUGS (8)
  1. CAPECITABINE [Suspect]
     Dosage: CUMULATIVE DOSE REPORTED AS 16500 MG.  FREQUENCY: 14 DAYS + ONE WEEK REST.
     Route: 048
     Dates: start: 20090616, end: 20090620
  2. DOCETAXEL [Suspect]
     Dosage: CUMULATIVE DOSE: 100 MG. START DATE LAST COURSE 16 JUNE 2009
     Route: 042
     Dates: start: 20090616, end: 20090616
  3. OXALIPLATIN [Suspect]
     Dosage: CUMULATIVE DOSE: 200 MG.  START DATE LAST COURSE 16 JUNE 2009
     Route: 042
     Dates: start: 20090616, end: 20090616
  4. AVANDIA [Concomitant]
     Dates: start: 20041201, end: 20090620
  5. METFORMIN HCL [Concomitant]
     Dosage: DRUG NAME REPORTED AS METHFORMINE
     Dates: start: 20040907, end: 20090620
  6. SIMVASTATIN [Concomitant]
     Dates: start: 20090109, end: 20090620
  7. NEXIUM [Concomitant]
     Dates: start: 20090525, end: 20090620
  8. MOVICOLON [Concomitant]
     Dosage: DAILY DOSE REPORTED AS ^T 30 CHCT^
     Dates: start: 20090609, end: 20090620

REACTIONS (1)
  - VENTRICULAR FIBRILLATION [None]
